FAERS Safety Report 8965272 (Version 1)
Quarter: 2012Q4

REPORT INFORMATION
  Report Type: 
  Country: US (occurrence: US)
  Receive Date: 20121213
  Receipt Date: 20121213
  Transmission Date: 20130627
  Serious: No
  Sender: FDA-Public Use
  Company Number: US-B.I. PHARMACEUTICALS,INC./RIDGEFIELD-2012-BI-02768BP

PATIENT
  Age: 77 Year
  Sex: Female

DRUGS (7)
  1. DULCOLAX TABLETS [Suspect]
     Indication: CONSTIPATION
     Dosage: 10 mg
     Dates: start: 20121204
  2. SPIRIVA [Suspect]
     Indication: ASTHMA
     Dosage: 18 mcg
     Route: 055
     Dates: start: 2007
  3. CARDIZEM [Concomitant]
     Indication: HYPERTENSION
     Dosage: 150 mg
     Route: 048
     Dates: start: 2005
  4. XANAX [Concomitant]
     Indication: HYPERTENSION
     Dosage: 2 mg
     Route: 048
     Dates: start: 2005
  5. ZOCOR [Concomitant]
     Indication: BLOOD CHOLESTEROL INCREASED
     Dosage: 20 mg
     Route: 048
     Dates: start: 2010
  6. DULERA [Concomitant]
     Indication: ASTHMA
     Dosage: 2 puf
     Route: 055
     Dates: start: 201211
  7. PROVENTIL [Concomitant]
     Indication: ASTHMA
     Dates: start: 2007

REACTIONS (5)
  - Abdominal pain [Recovered/Resolved]
  - Headache [Recovered/Resolved]
  - Palpitations [Recovered/Resolved]
  - Chest pain [Recovered/Resolved]
  - Blood pressure increased [Recovered/Resolved]
